FAERS Safety Report 9147830 (Version 2)
Quarter: 2013Q2

REPORT INFORMATION
  Report Type: Spontaneous
  Country: DK (occurrence: DK)
  Receive Date: 20130307
  Receipt Date: 20130401
  Transmission Date: 20140414
  Serious: Yes (Hospitalization, Other)
  Sender: FDA-Public Use
  Company Number: DK-ELI_LILLY_AND_COMPANY-DK201302010182

PATIENT
  Age: 70 Year
  Sex: Male
  Weight: 80 kg

DRUGS (4)
  1. EFIENT [Suspect]
     Indication: PERCUTANEOUS CORONARY INTERVENTION
     Dosage: 10 MG, QD
     Dates: start: 20110203
  2. SIMVASTATIN [Concomitant]
     Indication: ACUTE MYOCARDIAL INFARCTION
     Dosage: 40 MG, SINGLE
     Route: 048
  3. SELO-ZOK [Concomitant]
     Indication: ACUTE MYOCARDIAL INFARCTION
     Dosage: 12.5 MG, SINGLE
     Route: 048
  4. ANCO                               /00109201/ [Concomitant]
     Indication: HYPERTENSION
     Dosage: 25 MG, SINGLE

REACTIONS (1)
  - Angina unstable [Recovered/Resolved]
